FAERS Safety Report 22354529 (Version 2)
Quarter: 2023Q2

REPORT INFORMATION
  Report Type: Spontaneous
  Country: US (occurrence: US)
  Receive Date: 20230523
  Receipt Date: 20230525
  Transmission Date: 20230721
  Serious: No
  Sender: FDA-Public Use
  Company Number: US-AMGEN-USASP2023088254

PATIENT
  Age: 72 Year
  Sex: Male

DRUGS (1)
  1. REPATHA [Suspect]
     Active Substance: EVOLOCUMAB
     Indication: Blood cholesterol increased
     Dosage: 140 MILLIGRAM, Q2WK
     Route: 058
     Dates: start: 2022

REACTIONS (6)
  - Fear of injection [Unknown]
  - Cough [Unknown]
  - Device use error [Unknown]
  - Drug dose omission by device [Unknown]
  - Intentional product misuse [Unknown]
  - Device difficult to use [Unknown]

NARRATIVE: CASE EVENT DATE: 20230520
